FAERS Safety Report 9170258 (Version 1)
Quarter: 2013Q1

REPORT INFORMATION
  Report Type: Spontaneous
  Country: IT (occurrence: IT)
  Receive Date: 20130319
  Receipt Date: 20130319
  Transmission Date: 20140127
  Serious: Yes (Other)
  Sender: FDA-Public Use
  Company Number: IT-ACCORD-016906

PATIENT
  Age: 37 Year
  Sex: Male

DRUGS (2)
  1. QUETIAPINE FUMARATE [Suspect]
     Indication: INSOMNIA
     Dosage: DRUG STARTED WITH 12.5 MG AND THEN INCREASED TO 25 MG AND THEN TO 50 MG
  2. OXCARBAZEPINE [Concomitant]
     Indication: INSOMNIA
     Dosage: 300 MG, IN THE MORNING,?AND 600 MG AT BED TIME

REACTIONS (2)
  - Somnambulism [Recovered/Resolved]
  - Sleep-related eating disorder [Recovered/Resolved]
